FAERS Safety Report 8138160-1 (Version None)
Quarter: 2012Q1

REPORT INFORMATION
  Report Type: 
  Country: None (occurrence: None)
  Receive Date: 20120215
  Receipt Date: 20110401
  Transmission Date: 20120608
  Serious: No
  Sender: FDA-Public Use
  Company Number: US-SANOFI-AVENTIS-2011SA017348

PATIENT
  Sex: Female

DRUGS (1)
  1. DIABETA [Suspect]
     Route: 048

REACTIONS (4)
  - ORAL DISCOMFORT [None]
  - NAUSEA [None]
  - PRODUCT QUALITY ISSUE [None]
  - DIZZINESS [None]
